FAERS Safety Report 7345998-7 (Version None)
Quarter: 2011Q1

REPORT INFORMATION
  Report Type: 
  Country: None (occurrence: None)
  Receive Date: 20110307
  Receipt Date: 20110307
  Transmission Date: 20110831
  Serious: Yes (Death, Life-Threatening, Hospitalization, Disabling, Congenital Anomaly, Other)
  Sender: FDA-Public Use
  Company Number: None

PATIENT
  Age: 18 Year
  Sex: Female
  Weight: 78.4723 kg

DRUGS (1)
  1. ORTHO EVRA [Suspect]

REACTIONS (2)
  - EPILEPSY [None]
  - PRODUCT QUALITY ISSUE [None]
